FAERS Safety Report 7408357-4 (Version None)
Quarter: 2011Q1

REPORT INFORMATION
  Report Type: 
  Country: None (occurrence: None)
  Receive Date: 20110301
  Receipt Date: 20100712
  Transmission Date: 20110831
  Serious: Yes (Other)
  Sender: FDA-Public Use
  Company Number: ALA_01082_2010

PATIENT
  Sex: Female
  Weight: 47.6277 kg

DRUGS (7)
  1. ESCITALOPRAM [Concomitant]
  2. CISAPRIDE [Concomitant]
  3. PHENYTOIN [Concomitant]
  4. REGLAN [Suspect]
     Indication: GASTROOESOPHAGEAL REFLUX DISEASE
     Dosage: (DF ORAL)
     Route: 048
     Dates: start: 19960101, end: 20070101
  5. PROMETHAZINE [Concomitant]
  6. DIPHENHYDRAMINE [Concomitant]
  7. LORAZEPAM [Concomitant]

REACTIONS (2)
  - EXTRAPYRAMIDAL DISORDER [None]
  - DYSKINESIA [None]
